FAERS Safety Report 17764524 (Version 2)
Quarter: 2020Q2

REPORT INFORMATION
  Report Type: Spontaneous
  Country: CA (occurrence: CA)
  Receive Date: 20200511
  Receipt Date: 20200520
  Transmission Date: 20200714
  Serious: Yes (Other)
  Sender: FDA-Public Use
  Company Number: CA-AUROBINDO-AUR-APL-2020-022289

PATIENT
  Sex: Male

DRUGS (40)
  1. ZIDOVUDINE. [Interacting]
     Active Substance: ZIDOVUDINE
     Indication: HIV INFECTION
     Dosage: UNK
     Route: 065
     Dates: start: 200609
  2. ABACAVIR. [Interacting]
     Active Substance: ABACAVIR
     Indication: HIV INFECTION
     Dosage: UNK
     Route: 065
     Dates: start: 200609
  3. ATAZANAVIR. [Interacting]
     Active Substance: ATAZANAVIR
     Indication: HIV INFECTION
     Dosage: 400 MILLIGRAM, DAILY
     Route: 048
  4. TRIZIVIR [Interacting]
     Active Substance: ABACAVIR SULFATE\LAMIVUDINE\ZIDOVUDINE
     Indication: HIV INFECTION
     Dosage: 1 DOSAGE FORM, TWO TIMES A DAY
     Route: 065
     Dates: start: 200705
  5. RITONAVIR. [Interacting]
     Active Substance: RITONAVIR
     Dosage: 100 MILLIGRAM, TWO TIMES A DAY
     Route: 065
     Dates: start: 200708
  6. CICLOSPORIN [Interacting]
     Active Substance: CYCLOSPORINE
     Dosage: 20MG IN THE MORNING AND 1 OMG IN THE EVENING (30 MG/DAY).UNK
     Route: 065
  7. CICLOSPORIN [Interacting]
     Active Substance: CYCLOSPORINE
     Dosage: 25MG IN THE MORNING AND 1 OMG IN THE EVENING (35 MG/DAY)
     Route: 065
     Dates: start: 201703
  8. LAMIVUDINE. [Interacting]
     Active Substance: LAMIVUDINE
     Dosage: 300 MILLIGRAM, DAILY
     Route: 048
  9. ABACAVIR. [Interacting]
     Active Substance: ABACAVIR
     Dosage: 600 MILLIGRAM, DAILY
     Route: 065
     Dates: start: 200707
  10. TACROLIMUS. [Interacting]
     Active Substance: TACROLIMUS
     Indication: IMMUNOSUPPRESSANT DRUG THERAPY
     Dosage: 0.5 MILLIGRAM, TWO TIMES A DAY
     Route: 065
  11. GENVOYA [Interacting]
     Active Substance: COBICISTAT\ELVITEGRAVIR\EMTRICITABINE\TENOFOVIR ALAFENAMIDE FUMARATE
     Indication: HIV INFECTION
     Dosage: 150MG/150MG/200MG/10MG
     Route: 065
  12. LAMIVUDINE. [Interacting]
     Active Substance: LAMIVUDINE
     Dosage: 400 MILLIGRAM, DAILY
     Route: 065
     Dates: start: 200708
  13. ABACAVIR. [Interacting]
     Active Substance: ABACAVIR
     Dosage: 600 MILLIGRAM, DAILY
     Route: 065
     Dates: start: 200708
  14. TACROLIMUS. [Interacting]
     Active Substance: TACROLIMUS
     Dosage: 0.25 MILLIGRAM, ONCE A DAY
     Route: 065
  15. PREDNISONE. [Interacting]
     Active Substance: PREDNISONE
     Indication: IMMUNOSUPPRESSANT DRUG THERAPY
     Dosage: UNK
     Route: 065
  16. RITONAVIR. [Interacting]
     Active Substance: RITONAVIR
     Indication: HIV INFECTION
     Dosage: 100 MILLIGRAM, DAILY
     Route: 065
     Dates: start: 200705
  17. DARUNAVIR [Interacting]
     Active Substance: DARUNAVIR
     Dosage: 600 MILLIGRAM, TWO TIMES A DAY
     Route: 065
  18. LAMIVUDINE. [Suspect]
     Active Substance: LAMIVUDINE
     Indication: HIV INFECTION
     Dosage: UNK
     Route: 065
     Dates: start: 200609
  19. TACROLIMUS. [Interacting]
     Active Substance: TACROLIMUS
     Dosage: 0.1 MILLIGRAM, DAILY
     Route: 065
  20. RITONAVIR. [Interacting]
     Active Substance: RITONAVIR
     Dosage: 100 MILLIGRAM, TWO TIMES A DAY
     Route: 065
     Dates: start: 201101
  21. CICLOSPORIN [Interacting]
     Active Substance: CYCLOSPORINE
     Dosage: 25 MILLIGRAM, TWO TIMES A DAY
     Route: 065
  22. DARUNAVIR [Interacting]
     Active Substance: DARUNAVIR
     Indication: HIV INFECTION
     Dosage: 600 MILLIGRAM, TWO TIMES A DAY
     Route: 065
     Dates: start: 200708
  23. LAMIVUDINE. [Interacting]
     Active Substance: LAMIVUDINE
     Dosage: 400 MILLIGRAM, DAILY
     Route: 065
     Dates: start: 200707
  24. TACROLIMUS. [Interacting]
     Active Substance: TACROLIMUS
     Dosage: 0.07 MILLIGRAM, EVERY OTHER DAY
     Route: 065
  25. RITONAVIR. [Interacting]
     Active Substance: RITONAVIR
     Dosage: 100 MILLIGRAM, TWO TIMES A DAY
     Route: 065
     Dates: start: 201101
  26. CICLOSPORIN [Interacting]
     Active Substance: CYCLOSPORINE
     Indication: IMMUNOSUPPRESSANT DRUG THERAPY
     Dosage: 3 MILLIGRAM, EVERY OTHER DAY
     Route: 065
     Dates: start: 201109
  27. CICLOSPORIN [Interacting]
     Active Substance: CYCLOSPORINE
     Dosage: 20 MILLIGRAM, DAILY
     Route: 065
     Dates: start: 20110903, end: 20110930
  28. ETRAVIRINE [Interacting]
     Active Substance: ETRAVIRINE
     Indication: HIV INFECTION
     Dosage: 200 MILLIGRAM, TWO TIMES A DAY
     Route: 065
  29. DARUNAVIR [Interacting]
     Active Substance: DARUNAVIR
     Dosage: 600 MILLIGRAM, TWO TIMES A DAY
     Route: 065
     Dates: start: 201101
  30. TACROLIMUS. [Interacting]
     Active Substance: TACROLIMUS
     Dosage: 0.2 MILLIGRAM, EVERY OTHER DAY
     Route: 065
  31. FOSAMPRENAVIR [Interacting]
     Active Substance: FOSAMPRENAVIR
     Indication: HIV INFECTION
     Dosage: 700 MILLIGRAM, TWO TIMES A DAY
     Route: 065
     Dates: start: 200707
  32. TRUVADA [Interacting]
     Active Substance: EMTRICITABINE\TENOFOVIR DISOPROXIL FUMARATE
     Indication: HIV INFECTION
     Dosage: UNK
     Route: 065
     Dates: start: 201101
  33. CICLOSPORIN [Interacting]
     Active Substance: CYCLOSPORINE
     Dosage: 10 MILLIGRAM, TWO TIMES A DAY
     Route: 065
  34. STAVUDINE. [Interacting]
     Active Substance: STAVUDINE
     Indication: HIV INFECTION
     Dosage: 40 MILLIGRAM, DAILY
     Route: 048
  35. RITONAVIR. [Interacting]
     Active Substance: RITONAVIR
     Dosage: 100 MILLIGRAM, TWO TIMES A DAY
     Route: 065
     Dates: start: 200707
  36. CICLOSPORIN [Interacting]
     Active Substance: CYCLOSPORINE
     Dosage: 20MG IN THE MORNING AND 10MG IN THE EVENING
     Route: 065
     Dates: start: 201110
  37. RALTEGRAVIR. [Interacting]
     Active Substance: RALTEGRAVIR
     Indication: HIV INFECTION
     Dosage: 400 MILLIGRAM, TWO TIMES A DAY
     Route: 065
  38. ABACAVIR. [Interacting]
     Active Substance: ABACAVIR
     Dosage: 600 MILLIGRAM, DAILY
     Route: 065
  39. TACROLIMUS. [Interacting]
     Active Substance: TACROLIMUS
     Dosage: 0.1 MILLIGRAM, ONCE WEEKLY
     Route: 065
  40. MYCOPHENOLATE MOFETIL. [Interacting]
     Active Substance: MYCOPHENOLATE MOFETIL
     Indication: IMMUNOSUPPRESSANT DRUG THERAPY
     Dosage: UNK
     Route: 065

REACTIONS (3)
  - Heart transplant rejection [Unknown]
  - Drug interaction [Unknown]
  - Drug level increased [Unknown]
